FAERS Safety Report 4837496-7 (Version None)
Quarter: 2005Q4

REPORT INFORMATION
  Report Type: 
  Country: None (occurrence: None)
  Receive Date: 20051128
  Receipt Date: 20051111
  Transmission Date: 20060501
  Serious: Yes (Death)
  Sender: FDA-Public Use
  Company Number: 2005JP002161

PATIENT
  Age: 68 Year
  Sex: Female
  Weight: 60 kg

DRUGS (18)
  1. CEFAZOLIN [Suspect]
     Indication: INFECTION PROPHYLAXIS
     Dosage: 1G TWICE PER DAY
     Route: 042
     Dates: start: 20050831, end: 20050904
  2. TERNELIN [Concomitant]
     Indication: DRUG USE FOR UNKNOWN INDICATION
  3. FLOMOX [Concomitant]
     Indication: DRUG USE FOR UNKNOWN INDICATION
  4. CRAVIT [Concomitant]
     Indication: DRUG USE FOR UNKNOWN INDICATION
  5. DANTRIUM [Concomitant]
     Indication: DRUG USE FOR UNKNOWN INDICATION
  6. LOXONIN [Concomitant]
     Indication: DRUG USE FOR UNKNOWN INDICATION
  7. MEILAX [Concomitant]
     Indication: DRUG USE FOR UNKNOWN INDICATION
  8. TRYPTANOL [Concomitant]
     Indication: DRUG USE FOR UNKNOWN INDICATION
  9. DOGMATYL [Concomitant]
     Indication: DRUG USE FOR UNKNOWN INDICATION
  10. DEPAS [Concomitant]
     Indication: DRUG USE FOR UNKNOWN INDICATION
  11. TOUGHMAC E [Concomitant]
     Indication: DRUG USE FOR UNKNOWN INDICATION
  12. MYSLEE [Concomitant]
     Indication: DRUG USE FOR UNKNOWN INDICATION
  13. FERROMIA [Concomitant]
     Indication: DRUG USE FOR UNKNOWN INDICATION
  14. NEUROTROPIN [Concomitant]
     Indication: DRUG USE FOR UNKNOWN INDICATION
  15. ORYZANOL [Concomitant]
     Indication: DRUG USE FOR UNKNOWN INDICATION
  16. PURSENNIDE [Concomitant]
     Indication: DRUG USE FOR UNKNOWN INDICATION
  17. VOLTAREN [Concomitant]
     Indication: DRUG USE FOR UNKNOWN INDICATION
  18. MELOXICAM [Concomitant]
     Indication: DRUG USE FOR UNKNOWN INDICATION

REACTIONS (5)
  - DEATH [None]
  - HEPATIC ENCEPHALOPATHY [None]
  - HEPATIC FAILURE [None]
  - LIVER DISORDER [None]
  - LYMPHOCYTE STIMULATION TEST POSITIVE [None]
